FAERS Safety Report 23723815 (Version 1)
Quarter: 2024Q2

REPORT INFORMATION
  Report Type: Spontaneous
  Country: US (occurrence: None)
  Receive Date: 20240409
  Receipt Date: 20240409
  Transmission Date: 20240715
  Serious: Yes (Hospitalization)
  Sender: FDA-Public Use
  Company Number: None

PATIENT
  Age: 39 Year
  Sex: Male

DRUGS (1)
  1. HEMLIBRA [Suspect]
     Active Substance: EMICIZUMAB-KXWH
     Indication: Factor VIII deficiency
     Dosage: FREQUENCY : EVERY OTHER WEEK;?I: INJECT 210 MG SUBCUTANEOUSLY ONCE EVERY 2 WEEKS FOR MAINENANCE?
     Route: 058

REACTIONS (1)
  - Pain [None]

NARRATIVE: CASE EVENT DATE: 20240301
